FAERS Safety Report 17205700 (Version 1)
Quarter: 2019Q4

REPORT INFORMATION
  Report Type: Spontaneous
  Country: CA (occurrence: CA)
  Receive Date: 20191227
  Receipt Date: 20191227
  Transmission Date: 20200122
  Serious: Yes (Other)
  Sender: FDA-Public Use
  Company Number: CA-AUROBINDO-AUR-APL-2019-107154

PATIENT
  Age: 60 Year
  Sex: Female

DRUGS (15)
  1. OMALIZUMAB. [Suspect]
     Active Substance: OMALIZUMAB
     Dosage: UNK
     Route: 058
  2. PREDNISONE. [Concomitant]
     Active Substance: PREDNISONE
     Indication: PRODUCT USED FOR UNKNOWN INDICATION
     Dosage: UNK
     Route: 065
  3. AMOXICILLIN. [Suspect]
     Active Substance: AMOXICILLIN
     Indication: PRODUCT USED FOR UNKNOWN INDICATION
     Dosage: UNK
     Route: 065
  4. OMALIZUMAB. [Suspect]
     Active Substance: OMALIZUMAB
     Dosage: UNK
     Route: 058
  5. OMALIZUMAB. [Suspect]
     Active Substance: OMALIZUMAB
     Dosage: 150 MILLIGRAM
     Route: 058
  6. OMALIZUMAB. [Suspect]
     Active Substance: OMALIZUMAB
     Dosage: UNK
     Route: 058
  7. OMALIZUMAB. [Suspect]
     Active Substance: OMALIZUMAB
     Dosage: UNK
     Route: 058
  8. CETIRIZINE [Concomitant]
     Active Substance: CETIRIZINE HYDROCHLORIDE
     Indication: URTICARIA
     Dosage: 20.0 MILLIGRAM, ONCE A DAY
     Route: 065
  9. REACTINE [Concomitant]
     Indication: PRODUCT USED FOR UNKNOWN INDICATION
     Dosage: 4.0 DOSAGE FORM, ONCE A DAY
     Route: 048
  10. OMALIZUMAB. [Suspect]
     Active Substance: OMALIZUMAB
     Indication: CHRONIC SPONTANEOUS URTICARIA
     Dosage: 300 MILLIGRAM
     Route: 058
  11. OMALIZUMAB. [Suspect]
     Active Substance: OMALIZUMAB
     Dosage: 300 MILLIGRAM
     Route: 058
  12. OMALIZUMAB. [Suspect]
     Active Substance: OMALIZUMAB
     Dosage: UNK
     Route: 058
  13. BILASTINE [Concomitant]
     Active Substance: BILASTINE
     Indication: PRODUCT USED FOR UNKNOWN INDICATION
     Dosage: 4.0 DOSAGE FORM, ONCE A DAY
     Route: 065
  14. OMALIZUMAB. [Suspect]
     Active Substance: OMALIZUMAB
     Dosage: 300 MILLIGRAM
     Route: 058
  15. OMALIZUMAB. [Suspect]
     Active Substance: OMALIZUMAB
     Dosage: 300 MILLIGRAM
     Route: 058

REACTIONS (12)
  - Scratch [Not Recovered/Not Resolved]
  - Hypersensitivity [Not Recovered/Not Resolved]
  - Feeling abnormal [Not Recovered/Not Resolved]
  - Gait disturbance [Not Recovered/Not Resolved]
  - Therapeutic response decreased [Not Recovered/Not Resolved]
  - Rash [Not Recovered/Not Resolved]
  - Swelling [Not Recovered/Not Resolved]
  - Heart rate increased [Not Recovered/Not Resolved]
  - Pain in extremity [Not Recovered/Not Resolved]
  - Headache [Not Recovered/Not Resolved]
  - Irritability [Not Recovered/Not Resolved]
  - Urticaria [Not Recovered/Not Resolved]
